FAERS Safety Report 4517530-4 (Version None)
Quarter: 2004Q4

REPORT INFORMATION
  Report Type: 
  Country: None (occurrence: None)
  Receive Date: 20041130
  Receipt Date: 20041118
  Transmission Date: 20050328
  Serious: Yes (Hospitalization)
  Sender: FDA-Public Use
  Company Number: 2004-BP-09737BP

PATIENT
  Age: 41 Year
  Sex: Male

DRUGS (3)
  1. MOBIC [Suspect]
     Indication: ARTHRALGIA
     Dosage: 7.5 MG (7.5 MG, 1 QD) PO;  ONCE
     Route: 048
     Dates: start: 20041010, end: 20041010
  2. MOBIC [Suspect]
     Indication: ARTHRITIS
     Dosage: 7.5 MG (7.5 MG, 1 QD) PO;  ONCE
     Route: 048
     Dates: start: 20041010, end: 20041010
  3. BEXTRA [Concomitant]

REACTIONS (2)
  - ATRIAL FIBRILLATION [None]
  - HEART RATE INCREASED [None]
